FAERS Safety Report 19798533 (Version 1)
Quarter: 2021Q3

REPORT INFORMATION
  Report Type: Spontaneous
  Country: US (occurrence: US)
  Receive Date: 20210903
  Receipt Date: 20210903
  Transmission Date: 20211014
  Serious: No
  Sender: FDA-Public Use
  Company Number: None

PATIENT
  Age: 74 Year
  Sex: Male
  Weight: 94 kg

DRUGS (1)
  1. CASIRIVIMAB/IMDEVIMAB (EUA) (CASIRIVIMAB 1200MG/IMDEVIMAB 1200MG (EUA)) [Suspect]
     Active Substance: CASIRIVIMAB\IMDEVIMAB
     Indication: UPPER RESPIRATORY TRACT INFECTION
     Route: 042
     Dates: start: 20210817, end: 20210817

REACTIONS (9)
  - Asthenia [None]
  - Decreased appetite [None]
  - Chills [None]
  - Dizziness [None]
  - Pyrexia [None]
  - Diarrhoea [None]
  - COVID-19 [None]
  - Troponin increased [None]
  - Weight decreased [None]

NARRATIVE: CASE EVENT DATE: 20210817
